FAERS Safety Report 8512052-8 (Version None)
Quarter: 2012Q3

REPORT INFORMATION
  Report Type: 
  Country: None (occurrence: None)
  Receive Date: 20120716
  Receipt Date: 20120703
  Transmission Date: 20120928
  Serious: Yes (Hospitalization)
  Sender: FDA-Public Use
  Company Number: IT-TEVA-347021ISR

PATIENT
  Sex: Female

DRUGS (2)
  1. PACLITAXEL [Suspect]
     Indication: OVARIAN CANCER
     Dosage: 150 MILLIGRAM;
     Route: 042
     Dates: start: 20120322, end: 20120514
  2. IOMERON-150 [Concomitant]
     Indication: IMAGING PROCEDURE
     Dates: start: 20120514, end: 20120514

REACTIONS (6)
  - NAUSEA [None]
  - HYPOREFLEXIA [None]
  - HYPOTENSION [None]
  - PALLOR [None]
  - VERTIGO [None]
  - HYPERHIDROSIS [None]
